FAERS Safety Report 9763735 (Version 1)
Quarter: 2013Q4

REPORT INFORMATION
  Report Type: Spontaneous
  Country: US (occurrence: US)
  Receive Date: 20131216
  Receipt Date: 20131216
  Transmission Date: 20140711
  Serious: No
  Sender: FDA-Public Use
  Company Number: US-BIOGENIDEC-2013BI116086

PATIENT
  Age: 53 Year
  Sex: Male

DRUGS (12)
  1. TECFIDERA [Suspect]
     Indication: MULTIPLE SCLEROSIS
     Route: 048
     Dates: start: 20131107
  2. AMPYRA [Concomitant]
  3. ATIVAN [Concomitant]
  4. DEPAKOTE ER [Concomitant]
  5. DESIPRAMINE HCL [Concomitant]
  6. EFFEXOR XR [Concomitant]
  7. FLOMAX [Concomitant]
  8. GABAPENTIN [Concomitant]
  9. LAMICTAL [Concomitant]
  10. PROVIGIL [Concomitant]
  11. TRAZODONE HCL [Concomitant]
  12. ROBAXIN [Concomitant]

REACTIONS (4)
  - Influenza like illness [Unknown]
  - Decreased appetite [Unknown]
  - Vomiting [Unknown]
  - Diarrhoea [Unknown]
